FAERS Safety Report 7908643-5 (Version None)
Quarter: 2011Q4

REPORT INFORMATION
  Report Type: 
  Country: None (occurrence: None)
  Receive Date: 20111111
  Receipt Date: 20111108
  Transmission Date: 20120403
  Serious: Yes (Death, Other)
  Sender: FDA-Public Use
  Company Number: PHFR2011GB04005

PATIENT
  Sex: Male

DRUGS (5)
  1. MAXOLON [Concomitant]
     Dosage: UNK
     Route: 065
  2. PROCYCLIDINE HYDROCHLORIDE 2MG TAB [Concomitant]
     Dosage: UNK
     Route: 065
  3. CLOZARIL [Suspect]
     Indication: SCHIZOPHRENIA
     Route: 048
     Dates: start: 20090727
  4. PERICIAZINE [Concomitant]
     Dosage: UNK
     Route: 065
  5. SIMVASTATIN [Concomitant]
     Dosage: UNK
     Route: 065

REACTIONS (2)
  - PULMONARY HAEMORRHAGE [None]
  - HEPATITIS C [None]
